FAERS Safety Report 9830948 (Version 1)
Quarter: 2014Q1

REPORT INFORMATION
  Report Type: Report from Study
  Country: FR (occurrence: FR)
  Receive Date: 20140120
  Receipt Date: 20140120
  Transmission Date: 20141002
  Serious: Yes (Other)
  Sender: FDA-Public Use
  Company Number: PHHY2014FR005594

PATIENT
  Sex: Male

DRUGS (1)
  1. GILENYA [Suspect]
     Dosage: UNK
     Route: 048
     Dates: start: 2013

REACTIONS (1)
  - Central nervous system lesion [Unknown]
